FAERS Safety Report 6219712-2 (Version None)
Quarter: 2009Q2

REPORT INFORMATION
  Report Type: 
  Country: None (occurrence: None)
  Receive Date: 20090609
  Receipt Date: 20090601
  Transmission Date: 20091009
  Serious: Yes (Death, Hospitalization)
  Sender: FDA-Public Use
  Company Number: GB-AMGEN-UK198334

PATIENT
  Sex: Female

DRUGS (11)
  1. PANITUMUMAB [Suspect]
     Indication: COLORECTAL CANCER
     Route: 041
     Dates: start: 20060928, end: 20061123
  2. NULYTELY [Concomitant]
     Route: 048
     Dates: start: 20061005
  3. LIGNOCAINE [Concomitant]
     Route: 061
     Dates: start: 20061012
  4. ATROPINE [Concomitant]
     Route: 058
     Dates: start: 20060928, end: 20061116
  5. ONDANSETRON [Concomitant]
     Route: 042
     Dates: start: 20060928, end: 20061118
  6. DEXAMETHASONE [Concomitant]
     Route: 042
     Dates: start: 20060928, end: 20070118
  7. LISINOPRIL [Concomitant]
     Route: 048
  8. INFUMORPH [Concomitant]
     Route: 048
     Dates: start: 20061123
  9. FOLINIC ACID [Concomitant]
     Route: 065
     Dates: start: 20061130, end: 20061216
  10. FLUOROURACIL [Concomitant]
     Route: 065
     Dates: start: 20061130, end: 20061216
  11. IRINOTECAN HCL [Concomitant]
     Route: 065
     Dates: start: 20061130, end: 20061216

REACTIONS (4)
  - CONDITION AGGRAVATED [None]
  - DEEP VEIN THROMBOSIS [None]
  - PULMONARY EMBOLISM [None]
  - RECTAL CANCER METASTATIC [None]
